FAERS Safety Report 9545248 (Version 1)
Quarter: 2013Q3

REPORT INFORMATION
  Report Type: Spontaneous
  Country: US (occurrence: US)
  Receive Date: 20130923
  Receipt Date: 20130923
  Transmission Date: 20140515
  Serious: No
  Sender: FDA-Public Use
  Company Number: US-GLAXOSMITHKLINE-A1006658A

PATIENT
  Age: 57 Year
  Sex: Female

DRUGS (3)
  1. ABREVA [Suspect]
     Indication: PRODUCT USED FOR UNKNOWN INDICATION
     Dates: start: 20121223, end: 20121226
  2. CARMEX [Concomitant]
  3. VASELINE [Concomitant]

REACTIONS (5)
  - Oral herpes [Unknown]
  - Condition aggravated [Unknown]
  - Drug ineffective [Unknown]
  - Drug administration error [Unknown]
  - Scar [Unknown]
